FAERS Safety Report 11021575 (Version 1)
Quarter: 2015Q2

REPORT INFORMATION
  Report Type: Spontaneous
  Country: AU (occurrence: AU)
  Receive Date: 20150413
  Receipt Date: 20150413
  Transmission Date: 20150821
  Serious: Yes (Life-Threatening, Hospitalization)
  Sender: FDA-Public Use
  Company Number: AU-ACTELION-A-CH2015-115539

PATIENT
  Age: 78 Year
  Sex: Female
  Weight: 42 kg

DRUGS (7)
  1. TRACLEER [Suspect]
     Active Substance: BOSENTAN\BOSENTAN MONOHYDRATE
     Indication: PULMONARY ARTERIAL HYPERTENSION
     Dosage: 62.5 MG, BID
     Route: 048
     Dates: start: 201311
  2. FOSAMAX [Concomitant]
     Active Substance: ALENDRONATE SODIUM
  3. FISH OIL [Concomitant]
     Active Substance: FISH OIL
  4. PREDNISOLONE. [Concomitant]
     Active Substance: PREDNISOLONE
  5. NEXIUM [Concomitant]
     Active Substance: ESOMEPRAZOLE MAGNESIUM
     Dosage: 40 MG, QD
  6. SILDENAFIL. [Concomitant]
     Active Substance: SILDENAFIL
     Dosage: 25 MG, TID
  7. MULTIVITAMIN [Concomitant]
     Active Substance: VITAMINS

REACTIONS (7)
  - Pulmonary arterial hypertension [Unknown]
  - Dyspnoea [Unknown]
  - Disease progression [Unknown]
  - Gastrointestinal haemorrhage [Recovered/Resolved]
  - General physical condition abnormal [Unknown]
  - Hypovolaemic shock [Recovered/Resolved]
  - Circulatory collapse [Recovered/Resolved]

NARRATIVE: CASE EVENT DATE: 2015
